FAERS Safety Report 19228388 (Version 2)
Quarter: 2021Q2

REPORT INFORMATION
  Report Type: Spontaneous
  Country: US (occurrence: US)
  Receive Date: 20210506
  Receipt Date: 20210526
  Transmission Date: 20210717
  Serious: Yes (Other)
  Sender: FDA-Public Use
  Company Number: US-PFIZER INC-2021504063

PATIENT
  Age: 82 Year
  Sex: Female
  Weight: 64.6 kg

DRUGS (22)
  1. JANUVIA [Concomitant]
     Active Substance: SITAGLIPTIN PHOSPHATE
  2. LEVEMIR [Concomitant]
     Active Substance: INSULIN DETEMIR
  3. SYNTHROID [Concomitant]
     Active Substance: LEVOTHYROXINE SODIUM
  4. VYNDAMAX [Suspect]
     Active Substance: TAFAMIDIS
     Indication: AMYLOIDOSIS
     Dosage: 61 MG, DAILY
     Route: 048
     Dates: start: 20210409
  5. CALTRATE [Concomitant]
     Active Substance: CALCIUM CARBONATE
  6. AZELASTIN [Concomitant]
     Route: 045
  7. BENAZEPRIL [Concomitant]
     Active Substance: BENAZEPRIL HYDROCHLORIDE
  8. DICYCLOMINE [Concomitant]
     Active Substance: DICYCLOMINE HYDROCHLORIDE
  9. VITAMIN C [Concomitant]
     Active Substance: ASCORBIC ACID
  10. ESOMEPRAZOLE. [Concomitant]
     Active Substance: ESOMEPRAZOLE MAGNESIUM
  11. SUCRALFATE. [Concomitant]
     Active Substance: SUCRALFATE
  12. VITAMIN D3 WILD [Concomitant]
     Active Substance: CHOLECALCIFEROL
  13. ATORVASTATIN [Concomitant]
     Active Substance: ATORVASTATIN
  14. HUMALOG [Concomitant]
     Active Substance: INSULIN LISPRO
     Dosage: UNK
  15. MAGNESIUM OXIDE HEAVY [Concomitant]
     Active Substance: MAGNESIUM OXIDE
  16. SPIRONOLACTONE. [Concomitant]
     Active Substance: SPIRONOLACTONE
  17. XIIDRA [Concomitant]
     Active Substance: LIFITEGRAST
  18. FLUTICASONE PROPIONATE (GLUCOCORTICOID) [Concomitant]
     Active Substance: FLUTICASONE PROPIONATE
     Route: 045
  19. FUROSEMIDE. [Concomitant]
     Active Substance: FUROSEMIDE
  20. VITAMIN B6 F [Concomitant]
  21. ELIQUIS [Concomitant]
     Active Substance: APIXABAN
  22. SOTALOL. [Concomitant]
     Active Substance: SOTALOL

REACTIONS (3)
  - Neuropathy peripheral [Not Recovered/Not Resolved]
  - Dizziness [Not Recovered/Not Resolved]
  - Arthralgia [Not Recovered/Not Resolved]
